FAERS Safety Report 23597676 (Version 1)
Quarter: 2024Q1

REPORT INFORMATION
  Report Type: Spontaneous
  Country: US (occurrence: US)
  Receive Date: 20240305
  Receipt Date: 20240305
  Transmission Date: 20240409
  Serious: No
  Sender: FDA-Public Use
  Company Number: US-CTI BIOPHARMA-2024US04530

PATIENT

DRUGS (13)
  1. VONJO [Suspect]
     Active Substance: PACRITINIB
     Indication: Myelofibrosis
     Dosage: 100 MG, BID
     Route: 048
  2. AMPHETAMINE [Concomitant]
     Active Substance: AMPHETAMINE
  3. ULORIC [Concomitant]
     Active Substance: FEBUXOSTAT
  4. IBUPROFEN [Concomitant]
     Active Substance: IBUPROFEN
  5. LORAZEPAM [Concomitant]
     Active Substance: LORAZEPAM
  6. MAGNESIUM [Concomitant]
     Active Substance: MAGNESIUM
  7. METOPROLOL [Concomitant]
     Active Substance: METOPROLOL
  8. ENTRESTO [Concomitant]
     Active Substance: SACUBITRIL\VALSARTAN
  9. FUROSEMIDE [Concomitant]
     Active Substance: FUROSEMIDE
  10. VITAMINS NOS [Concomitant]
     Active Substance: VITAMINS
  11. MINERALS\VITAMINS [Concomitant]
     Active Substance: MINERALS\VITAMINS
  12. OSTEO-BI-FLEX [Concomitant]
  13. LEVOTHYROXINE [Concomitant]
     Active Substance: LEVOTHYROXINE\LEVOTHYROXINE SODIUM

REACTIONS (3)
  - Malaise [Unknown]
  - Abdominal discomfort [Unknown]
  - Transfusion [Unknown]

NARRATIVE: CASE EVENT DATE: 20240220
